FAERS Safety Report 5894806-X (Version None)
Quarter: 2008Q3

REPORT INFORMATION
  Report Type: 
  Country: None (occurrence: None)
  Receive Date: 20080828
  Receipt Date: 20080226
  Transmission Date: 20090109
  Serious: Yes (Other)
  Sender: FDA-Public Use
  Company Number: 168088USA

PATIENT
  Sex: Female

DRUGS (1)
  1. FLUCONAZOLE [Suspect]
     Dosage: 150 MG (150 MG,1 IN 1 D),ORAL
     Route: 048

REACTIONS (6)
  - CONTUSION [None]
  - HYPERSENSITIVITY [None]
  - LIP DISCOLOURATION [None]
  - LIP SWELLING [None]
  - PHARYNGEAL OEDEMA [None]
  - SWOLLEN TONGUE [None]
